FAERS Safety Report 10525288 (Version 4)
Quarter: 2014Q4

REPORT INFORMATION
  Report Type: Spontaneous
  Country: JP (occurrence: None)
  Receive Date: 20141015
  Receipt Date: 20141124
  Transmission Date: 20150528
  Serious: Yes (Hospitalization, Other)
  Sender: FDA-Public Use
  Company Number: A201410643

PATIENT
  Age: 48 Year
  Sex: Male

DRUGS (13)
  1. BENET (RISEDRONATE SODIUM) [Concomitant]
  2. VIREAD [Suspect]
     Active Substance: TENOFOVIR DISOPROXIL FUMARATE
     Indication: HIV INFECTION
     Dosage: 300 MG, U?
  3. BIOFERMIN (BACILLUS SUBTILIS + LACTOBACILLUS ACIDOPHILUS + STREPTOCOCCUS FAECAELIS) [Concomitant]
  4. SELBEX (TEPRENONE) [Concomitant]
     Active Substance: TEPRENONE
  5. EPIVIR [Suspect]
     Active Substance: LAMIVUDINE
     Indication: HIV INFECTION
     Dosage: 300 MG, U, ORAL
     Route: 048
     Dates: end: 201407
  6. EPZICOM [Suspect]
     Active Substance: ABACAVIR SULFATE\LAMIVUDINE
     Indication: HIV INFECTION
     Dosage: 1 DF, QD, ORAL
     Route: 048
     Dates: start: 20140801
  7. NORVIR [Concomitant]
     Active Substance: RITONAVIR
  8. ALINAMIN-F (FURSULTIAMINE HYDROCHLORIDE) [Concomitant]
  9. TIVICAY [Suspect]
     Active Substance: DOLUTEGRAVIR SODIUM
     Indication: HIV INFECTION
     Route: 048
     Dates: start: 20140801
  10. CYTOTEC (MISOPROSTOL) [Concomitant]
  11. CELECOX (CELECOXIB) [Concomitant]
     Active Substance: CELECOXIB
  12. VOLTAREN SR (DICLOFENAC SODIUM) [Concomitant]
  13. PREZISTANAIVE (DARUNAVIR ETHANOLATE) [Concomitant]

REACTIONS (10)
  - Hydronephrosis [None]
  - Chromaturia [None]
  - Myalgia [None]
  - Pyelonephritis [None]
  - Blood urine present [None]
  - Calculus urinary [None]
  - Back pain [None]
  - Osteonecrosis [None]
  - Pyrexia [None]
  - Arthralgia [None]

NARRATIVE: CASE EVENT DATE: 20140909
